FAERS Safety Report 6504131-1 (Version None)
Quarter: 2009Q4

REPORT INFORMATION
  Report Type: 
  Country: None (occurrence: None)
  Receive Date: 20091217
  Receipt Date: 20091210
  Transmission Date: 20100525
  Serious: Yes (Other)
  Sender: FDA-Public Use
  Company Number: CHPA2009US23282

PATIENT
  Age: 43 Year
  Sex: Female
  Weight: 56.689 kg

DRUGS (2)
  1. PRIVATE LABEL (NCH) [Suspect]
     Indication: SMOKING CESSATION THERAPY
     Dosage: 21 MG, UNK
     Route: 062
     Dates: start: 20090101, end: 20090101
  2. NICOTINE POLACRILEX [Suspect]
     Indication: SMOKING CESSATION THERAPY
     Dosage: UNK
     Route: 048
     Dates: start: 20090101, end: 20090101

REACTIONS (4)
  - INTENTIONAL DRUG MISUSE [None]
  - KNEE OPERATION [None]
  - OVERDOSE [None]
  - TREATMENT NONCOMPLIANCE [None]
